FAERS Safety Report 4292567-1 (Version None)
Quarter: 2004Q1

REPORT INFORMATION
  Report Type: 
  Country: None (occurrence: None)
  Receive Date: 20040126
  Receipt Date: 20031020
  Transmission Date: 20041129
  Serious: No
  Sender: FDA-Public Use
  Company Number: USA031050359

PATIENT
  Age: 80 Year
  Sex: Female
  Weight: 66 kg

DRUGS (6)
  1. FORTEO [Suspect]
     Indication: OSTEOPOROSIS
     Dates: start: 20030701
  2. LASIX [Concomitant]
  3. PLAVIX [Concomitant]
  4. ASPIRIN [Concomitant]
  5. MULTIVITAMIN [Concomitant]
  6. CALCIUM [Concomitant]

REACTIONS (4)
  - ASTHENIA [None]
  - FEELING JITTERY [None]
  - FLUID RETENTION [None]
  - WEIGHT INCREASED [None]
